FAERS Safety Report 22202528 (Version 2)
Quarter: 2023Q2

REPORT INFORMATION
  Report Type: Spontaneous
  Country: GB (occurrence: GB)
  Receive Date: 20230412
  Receipt Date: 20230428
  Transmission Date: 20230721
  Serious: Yes (Hospitalization, Other)
  Sender: FDA-Public Use
  Company Number: None

PATIENT
  Age: 57 Year
  Sex: Female
  Weight: 89 kg

DRUGS (5)
  1. ATORVASTATIN [Interacting]
     Active Substance: ATORVASTATIN
     Indication: Adverse drug reaction
     Dosage: 20 MILLIGRAM DAILY; 20 MG ONCE DAILY
     Route: 065
     Dates: start: 20221031, end: 20230303
  2. ATORVASTATIN [Interacting]
     Active Substance: ATORVASTATIN
     Indication: Cardiovascular disorder
  3. ATORVASTATIN [Interacting]
     Active Substance: ATORVASTATIN
     Indication: Disease risk factor
  4. CLARITHROMYCIN [Suspect]
     Active Substance: CLARITHROMYCIN
     Indication: Adverse drug reaction
     Dosage: 1000 MILLIGRAM DAILY; 500 MG TWICE A DAY
     Route: 065
     Dates: start: 20230227, end: 20230303
  5. CLARITHROMYCIN [Suspect]
     Active Substance: CLARITHROMYCIN
     Indication: Lower respiratory tract infection

REACTIONS (5)
  - Psychotic disorder [Recovered/Resolved]
  - Confusional state [Unknown]
  - Insomnia [Unknown]
  - Disorientation [Unknown]
  - Labelled drug-drug interaction medication error [Unknown]

NARRATIVE: CASE EVENT DATE: 20230303
